FAERS Safety Report 25549911 (Version 1)
Quarter: 2025Q3

REPORT INFORMATION
  Report Type: Spontaneous
  Country: US (occurrence: US)
  Receive Date: 20250714
  Receipt Date: 20250714
  Transmission Date: 20251021
  Serious: No
  Sender: CALLIDITAS THERAPEUTICS AB
  Company Number: US-Calliditas-2025CAL01936

PATIENT
  Age: 43 Year
  Sex: Female

DRUGS (13)
  1. TARPEYO [Suspect]
     Active Substance: BUDESONIDE
     Indication: IgA nephropathy
     Route: 048
     Dates: start: 20230602, end: 20250622
  2. ALLOPURINOL [Concomitant]
     Active Substance: ALLOPURINOL
  3. AMLODIPINE [Concomitant]
     Active Substance: AMLODIPINE BESYLATE
  4. CELLCEPT [Concomitant]
     Active Substance: MYCOPHENOLATE MOFETIL
  5. CENTRUM [ASCORBIC ACID;BIOTIN;CALCIUM PANTOTHENATE;CALCIUM PHOSPHAT... [Concomitant]
  6. FUROSEMIDE [Concomitant]
     Active Substance: FUROSEMIDE
  7. LABETALOL [Concomitant]
     Active Substance: LABETALOL
  8. LISINOPRIL [Concomitant]
     Active Substance: LISINOPRIL
  9. OMEGA-3 FATTY ACIDS [Concomitant]
     Active Substance: OMEGA-3 FATTY ACIDS
  10. SEVELAMER [Concomitant]
     Active Substance: SEVELAMER
  11. SODIUM BICARBONATE [Concomitant]
     Active Substance: SODIUM BICARBONATE
  12. VITAMIN D3 [Concomitant]
     Active Substance: CHOLECALCIFEROL
  13. ROSUVASTATIN [Concomitant]
     Active Substance: ROSUVASTATIN

REACTIONS (2)
  - Renal transplant [Recovering/Resolving]
  - Dialysis [Recovering/Resolving]

NARRATIVE: CASE EVENT DATE: 20250622
